FAERS Safety Report 9580352 (Version 1)
Quarter: 2013Q4

REPORT INFORMATION
  Report Type: Spontaneous
  Country: TW (occurrence: TW)
  Receive Date: 20131002
  Receipt Date: 20131002
  Transmission Date: 20140711
  Serious: Yes (Death)
  Sender: FDA-Public Use
  Company Number: PHHY2013TW106659

PATIENT
  Age: 71 Year
  Sex: Male

DRUGS (7)
  1. IMIPENEM+CILASTATIN SODIUM [Suspect]
     Indication: ACTINOMYCOSIS
     Dosage: 500 MG, QID
  2. TETRACYCLINE [Suspect]
     Indication: ACTINOMYCOSIS
     Route: 048
  3. DOXYCYCLINE [Suspect]
     Indication: ACTINOMYCOSIS
     Route: 048
  4. HYDROXYCHLOROQUINE [Concomitant]
     Route: 048
  5. AMIKACIN [Concomitant]
     Dosage: 400 MG, BID
     Route: 042
     Dates: start: 201005
  6. TETRACYCLINE [Concomitant]
     Route: 061
     Dates: start: 201005
  7. PREDNISOLONE [Concomitant]
     Route: 048

REACTIONS (4)
  - Acute respiratory failure [Fatal]
  - Pneumonia [Fatal]
  - Nausea [Unknown]
  - Drug ineffective [Unknown]
